FAERS Safety Report 25367369 (Version 1)
Quarter: 2025Q2

REPORT INFORMATION
  Report Type: Spontaneous
  Country: PT (occurrence: PT)
  Receive Date: 20250528
  Receipt Date: 20250528
  Transmission Date: 20250716
  Serious: Yes (Hospitalization, Other)
  Sender: STRIDES
  Company Number: PT-STRIDES ARCOLAB LIMITED-2025SP006457

PATIENT
  Age: 5 Year
  Sex: Male

DRUGS (2)
  1. MYCOPHENOLATE MOFETIL [Suspect]
     Active Substance: MYCOPHENOLATE MOFETIL
     Indication: Nephrotic syndrome
     Route: 065
  2. VARIVAX [Suspect]
     Active Substance: VARICELLA-ZOSTER VIRUS STRAIN OKA/MERCK LIVE ANTIGEN
     Indication: Varicella immunisation
     Route: 058

REACTIONS (3)
  - Uveitis [Recovered/Resolved]
  - Varicella zoster virus infection [Recovered/Resolved]
  - Off label use [Unknown]
